FAERS Safety Report 25999953 (Version 1)
Quarter: 2025Q4

REPORT INFORMATION
  Report Type: Spontaneous
  Country: US (occurrence: None)
  Receive Date: 20251104
  Receipt Date: 20251104
  Transmission Date: 20260118
  Serious: Yes (Other)
  Sender: FDA-CTU
  Company Number: None

PATIENT
  Age: 50 Year
  Sex: Male

DRUGS (1)
  1. WEZLANA [Suspect]
     Active Substance: USTEKINUMAB-AUUB
     Indication: Psoriasis
     Dosage: 90MG EVERY 12 WEEKS ?

REACTIONS (5)
  - Headache [None]
  - Chest pain [None]
  - Fatigue [None]
  - Product dose omission issue [None]
  - Psoriasis [None]
